FAERS Safety Report 9646428 (Version 1)
Quarter: 2013Q4

REPORT INFORMATION
  Report Type: Spontaneous
  Country: CN (occurrence: None)
  Receive Date: 20131024
  Receipt Date: 20131024
  Transmission Date: 20140711
  Serious: Yes (Hospitalization)
  Sender: FDA-Public Use
  Company Number: VAL_02778_2013

PATIENT
  Age: 71 Year
  Sex: Male

DRUGS (5)
  1. BROMOCRIPTINE [Suspect]
     Indication: PROLACTINOMA
     Dosage: 2.5 MG, 1X/HOURS ORAL
     Route: 048
  2. ROSUVASTATIN CALCIUM [Suspect]
     Indication: LIPIDS ABNORMAL
     Route: 048
  3. CEFPIROME [Concomitant]
  4. MELBIN /00082702/ [Concomitant]
  5. ACARBOSE [Concomitant]

REACTIONS (3)
  - Hepatic lesion [None]
  - Aspartate aminotransferase increased [None]
  - Alanine aminotransferase increased [None]
